FAERS Safety Report 25289193 (Version 1)
Quarter: 2025Q2

REPORT INFORMATION
  Report Type: Spontaneous
  Country: TR (occurrence: TR)
  Receive Date: 20250509
  Receipt Date: 20250509
  Transmission Date: 20250717
  Serious: Yes (Other)
  Sender: AMGEN
  Company Number: TR-AMGEN-TURSP2025088572

PATIENT
  Age: 26 Year
  Sex: Female

DRUGS (6)
  1. BEVACIZUMAB [Suspect]
     Active Substance: BEVACIZUMAB
     Indication: Metastases to liver
     Route: 065
  2. CLOBETASOL [Concomitant]
     Active Substance: CLOBETASOL
  3. LANREOTIDE [Concomitant]
     Active Substance: LANREOTIDE
  4. Dotatoc [Concomitant]
  5. CAPECITABINE [Concomitant]
     Active Substance: CAPECITABINE
     Indication: Metastases to liver
  6. TEMOZOLOMIDE [Concomitant]
     Active Substance: TEMOZOLOMIDE
     Indication: Metastases to liver

REACTIONS (3)
  - Hepatic necrosis [Unknown]
  - Metastases to liver [Unknown]
  - Off label use [Unknown]
